FAERS Safety Report 7312433-4 (Version None)
Quarter: 2011Q1

REPORT INFORMATION
  Report Type: 
  Country: None (occurrence: None)
  Receive Date: 20110224
  Receipt Date: 20110214
  Transmission Date: 20110831
  Serious: Yes (Other)
  Sender: FDA-Public Use
  Company Number: GB-PURDUE-GBR-2010-0007305

PATIENT
  Age: 72 Year
  Sex: Female

DRUGS (2)
  1. OXYNORM INJECTION 10MG/ML [Suspect]
     Indication: ARTHRALGIA
     Dosage: UNK
     Route: 042
  2. CYCLIZINE [Interacting]
     Indication: PROPHYLAXIS OF NAUSEA AND VOMITING
     Route: 042

REACTIONS (3)
  - PAIN [None]
  - DRUG INTERACTION [None]
  - GENERAL PHYSICAL HEALTH DETERIORATION [None]
